FAERS Safety Report 9820696 (Version 1)
Quarter: 2014Q1

REPORT INFORMATION
  Report Type: Spontaneous
  Country: US (occurrence: None)
  Receive Date: 20140114
  Receipt Date: 20140114
  Transmission Date: 20141002
  Serious: Yes (Disabling)
  Sender: FDA-Public Use
  Company Number: None

PATIENT
  Age: 44 Year
  Sex: Female
  Weight: 53.07 kg

DRUGS (4)
  1. MACROBID [Suspect]
     Indication: URINARY TRACT INFECTION
     Dosage: BY MOUTH
     Dates: start: 20130904, end: 20130913
  2. MULTI-VITAMIN [Concomitant]
  3. CALCIUM [Concomitant]
  4. VIT D [Concomitant]

REACTIONS (3)
  - Rosacea [None]
  - Groin pain [None]
  - Musculoskeletal pain [None]
